FAERS Safety Report 7743102-4 (Version None)
Quarter: 2011Q3

REPORT INFORMATION
  Report Type: 
  Country: None (occurrence: None)
  Receive Date: 20110901
  Receipt Date: 20110816
  Transmission Date: 20111222
  Serious: Yes (Other)
  Sender: FDA-Public Use
  Company Number: DSA_46910_2011

PATIENT
  Sex: Female
  Weight: 43.9989 kg

DRUGS (1)
  1. ATIVAN [Suspect]
     Indication: ANXIETY
     Dosage: 0.5 MG TID ORAL
     Route: 048
     Dates: start: 20010101

REACTIONS (5)
  - PRODUCT QUALITY ISSUE [None]
  - INSOMNIA [None]
  - VENTRICULAR EXTRASYSTOLES [None]
  - HEADACHE [None]
  - DRUG WITHDRAWAL SYNDROME [None]
